FAERS Safety Report 8103303-2 (Version None)
Quarter: 2012Q1

REPORT INFORMATION
  Report Type: 
  Country: None (occurrence: None)
  Receive Date: 20120201
  Receipt Date: 20120123
  Transmission Date: 20120608
  Serious: Yes (Other)
  Sender: FDA-Public Use
  Company Number: US-AMGEN-USASP2012000797

PATIENT
  Age: 33 Year
  Sex: Female
  Weight: 112.47 kg

DRUGS (1)
  1. ENBREL [Suspect]
     Indication: RHEUMATOID ARTHRITIS
     Dosage: 50 MG, QWK
     Route: 058
     Dates: start: 20070101, end: 20110513

REACTIONS (5)
  - SYSTEMIC LUPUS ERYTHEMATOSUS [None]
  - JOINT DESTRUCTION [None]
  - SHOULDER OPERATION [None]
  - MUSCULOSKELETAL PAIN [None]
  - PAIN IN EXTREMITY [None]
